FAERS Safety Report 8383124-6 (Version None)
Quarter: 2012Q2

REPORT INFORMATION
  Report Type: 
  Country: None (occurrence: None)
  Receive Date: 20120524
  Receipt Date: 20120522
  Transmission Date: 20120825
  Serious: Yes (Hospitalization)
  Sender: FDA-Public Use
  Company Number: PHEH2012US010594

PATIENT

DRUGS (1)
  1. GILENYA [Suspect]
     Route: 048

REACTIONS (1)
  - RENAL IMPAIRMENT [None]
